FAERS Safety Report 13586121 (Version 2)
Quarter: 2017Q2

REPORT INFORMATION
  Report Type: Spontaneous
  Country: BR (occurrence: BR)
  Receive Date: 20170526
  Receipt Date: 20170606
  Transmission Date: 20170830
  Serious: Yes (Hospitalization, Other)
  Sender: FDA-Public Use
  Company Number: BR-009507513-1705BRA011821

PATIENT
  Age: 30 Year
  Sex: Female
  Weight: 84 kg

DRUGS (1)
  1. NASONEX [Suspect]
     Active Substance: MOMETASONE FUROATE
     Indication: RHINITIS
     Dosage: 2 JETS IN EACH NOSTRIL, ONCE DAILY
     Route: 045
     Dates: start: 1992, end: 2012

REACTIONS (5)
  - Caesarean section [Recovered/Resolved]
  - Premature delivery [Recovered/Resolved]
  - Eclampsia [Recovered/Resolved]
  - Maternal exposure during pregnancy [Unknown]
  - Nasal discomfort [Recovered/Resolved]

NARRATIVE: CASE EVENT DATE: 20120304
